FAERS Safety Report 4771365-6 (Version None)
Quarter: 2005Q3

REPORT INFORMATION
  Report Type: 
  Country: None (occurrence: None)
  Receive Date: 20050914
  Receipt Date: 20050826
  Transmission Date: 20060218
  Serious: Yes (Other)
  Sender: FDA-Public Use
  Company Number: USA0508106540

PATIENT
  Sex: Female

DRUGS (6)
  1. ZYPREXA [Suspect]
     Dosage: 10 MG
     Dates: start: 20010101
  2. LIPITOR [Concomitant]
  3. DILANTIN [Concomitant]
  4. ZOLOFT [Concomitant]
  5. NEXIUM [Concomitant]
  6. TYLENOL [Concomitant]

REACTIONS (15)
  - ANAEMIA [None]
  - ANOREXIA [None]
  - BACK INJURY [None]
  - BLOOD CREATININE INCREASED [None]
  - BREAST CANCER [None]
  - DIET REFUSAL [None]
  - DRUG DEPENDENCE [None]
  - DYSKINESIA [None]
  - FALL [None]
  - INCORRECT DOSE ADMINISTERED [None]
  - MEMORY IMPAIRMENT [None]
  - OVERDOSE [None]
  - PAIN [None]
  - UPPER LIMB FRACTURE [None]
  - WEIGHT DECREASED [None]
